FAERS Safety Report 22714098 (Version 2)
Quarter: 2024Q2

REPORT INFORMATION
  Report Type: Spontaneous
  Country: US (occurrence: US)
  Receive Date: 20230718
  Receipt Date: 20240429
  Transmission Date: 20240715
  Serious: No
  Sender: FDA-Public Use
  Company Number: US-ABBVIE-5327939

PATIENT
  Sex: Male

DRUGS (6)
  1. LUPRON [Suspect]
     Active Substance: LEUPROLIDE ACETATE
     Indication: Product used for unknown indication
     Dosage: FORM STRENGTH: 45 MILLIGRAM
     Route: 065
  2. XTANDI [Suspect]
     Active Substance: ENZALUTAMIDE
     Indication: Prostate cancer
     Route: 048
  3. XTANDI [Suspect]
     Active Substance: ENZALUTAMIDE
     Indication: Prostate cancer
     Route: 048
  4. XTANDI [Suspect]
     Active Substance: ENZALUTAMIDE
     Indication: Prostate cancer
     Route: 048
  5. XTANDI [Suspect]
     Active Substance: ENZALUTAMIDE
     Indication: Prostate cancer
     Route: 048
     Dates: start: 20191218, end: 202002
  6. XTANDI [Suspect]
     Active Substance: ENZALUTAMIDE
     Indication: Prostate cancer
     Route: 048
     Dates: start: 20200331

REACTIONS (31)
  - Sneezing [Recovering/Resolving]
  - Product use issue [Unknown]
  - Product supply issue [Unknown]
  - Blepharospasm [Recovered/Resolved]
  - Muscle twitching [Recovered/Resolved]
  - Muscle tightness [Unknown]
  - Blood pressure increased [Unknown]
  - Hot flush [Unknown]
  - Gastrooesophageal reflux disease [Recovered/Resolved]
  - Cellulite [Unknown]
  - Arthralgia [Not Recovered/Not Resolved]
  - Weight increased [Not Recovered/Not Resolved]
  - Abdominal distension [Unknown]
  - Fatigue [Not Recovered/Not Resolved]
  - Epistaxis [Recovered/Resolved]
  - Seasonal allergy [Unknown]
  - Productive cough [Recovering/Resolving]
  - Product availability issue [Unknown]
  - Pollakiuria [Not Recovered/Not Resolved]
  - Hyperhidrosis [Unknown]
  - Hot flush [Not Recovered/Not Resolved]
  - Blood pressure fluctuation [Recovered/Resolved]
  - Fluid retention [Not Recovered/Not Resolved]
  - Eye pruritus [Recovering/Resolving]
  - Insomnia [Unknown]
  - Rhinorrhoea [Recovering/Resolving]
  - Condition aggravated [Unknown]
  - Neck pain [Recovered/Resolved]
  - Gynaecomastia [Unknown]
  - Dizziness [Unknown]
  - Pain in extremity [Unknown]

NARRATIVE: CASE EVENT DATE: 20190101
